FAERS Safety Report 4905804-4 (Version None)
Quarter: 2006Q1

REPORT INFORMATION
  Report Type: 
  Country: None (occurrence: None)
  Receive Date: 20060203
  Receipt Date: 20060118
  Transmission Date: 20060701
  Serious: Yes (Other)
  Sender: FDA-Public Use
  Company Number: 2005BL004555

PATIENT
  Age: 86 Year
  Sex: Female
  Weight: 62.5964 kg

DRUGS (3)
  1. GENTAMICIN SULFATE [Suspect]
     Indication: CONJUNCTIVITIS
     Dosage: 2 DROP, EVERY 4 HOURS; OPHTHALMIC
     Route: 047
     Dates: start: 20050323, end: 20050423
  2. GENTAMICIN SULFATE [Suspect]
     Indication: OCULAR HYPERAEMIA
     Dosage: 2 DROP, EVERY 4 HOURS; OPHTHALMIC
     Route: 047
     Dates: start: 20050323, end: 20050423
  3. HYDROCHLOROTHIAZIDE [Concomitant]

REACTIONS (10)
  - ACTIVITIES OF DAILY LIVING IMPAIRED [None]
  - CATARACT [None]
  - DRY EYE [None]
  - EYE IRRITATION [None]
  - FOREIGN BODY SENSATION IN EYES [None]
  - OCULAR DISCOMFORT [None]
  - OCULAR HYPERAEMIA [None]
  - STRESS [None]
  - VISION BLURRED [None]
  - VISUAL ACUITY REDUCED [None]
